FAERS Safety Report 26072764 (Version 2)
Quarter: 2025Q4

REPORT INFORMATION
  Report Type: Report from Study
  Country: US (occurrence: US)
  Receive Date: 20251121
  Receipt Date: 20251125
  Transmission Date: 20260117
  Serious: Yes (Other)
  Sender: ABBVIE
  Company Number: US-ABBVIE-6556172

PATIENT
  Sex: Female

DRUGS (1)
  1. HUMIRA [Suspect]
     Active Substance: ADALIMUMAB
     Indication: Product used for unknown indication
     Route: 058
     Dates: start: 20030302

REACTIONS (5)
  - Spinal operation [Unknown]
  - Post procedural complication [Unknown]
  - Gastrointestinal disorder [Unknown]
  - Device issue [Not Recovered/Not Resolved]
  - Heart valve replacement [Unknown]
